FAERS Safety Report 20825881 (Version 1)
Quarter: 2022Q2

REPORT INFORMATION
  Report Type: Report from Study
  Country: US (occurrence: US)
  Receive Date: 20220513
  Receipt Date: 20220513
  Transmission Date: 20220721
  Serious: Yes (Hospitalization, Other)
  Sender: FDA-Public Use
  Company Number: US-SERVIER-S22004815

PATIENT

DRUGS (9)
  1. PEGASPARGASE [Suspect]
     Active Substance: PEGASPARGASE
     Indication: Acute lymphocytic leukaemia
     Dosage: 2500 IU/M2, EVERY 2 WEEKS
     Route: 042
     Dates: start: 20210906, end: 20220422
  2. DEXAMETHASONE [Suspect]
     Active Substance: DEXAMETHASONE
     Indication: Acute lymphocytic leukaemia
     Dosage: 6 MG/M2, QD
     Route: 048
     Dates: start: 20210901, end: 20220329
  3. MERCAPTOPURINE [Suspect]
     Active Substance: MERCAPTOPURINE
     Indication: Acute lymphocytic leukaemia
     Dosage: 50 MG/M2, D1 TO D14 OF EACH 3 WEEK CYCLE
     Route: 048
     Dates: start: 20211002, end: 20220408
  4. DOXORUBICIN [Suspect]
     Active Substance: DOXORUBICIN
     Indication: Acute lymphocytic leukaemia
     Dosage: 300 MG/M2, D1 OF EACH 3 WEEK CYCLE
     Route: 042
     Dates: start: 20211228, end: 20220325
  5. DEXRAZOXANE [Suspect]
     Active Substance: DEXRAZOXANE
     Indication: Acute lymphocytic leukaemia
     Dosage: 300 MG/M2,  D1 OF EACH CYCLE
     Route: 042
     Dates: start: 20211228, end: 20220325
  6. METHOTREXATE [Suspect]
     Active Substance: METHOTREXATE
     Indication: Acute lymphocytic leukaemia
     Dosage: 12 MG, EVERY 9 WEEKS
     Route: 037
     Dates: start: 20211102, end: 20220211
  7. CYTARABINE [Suspect]
     Active Substance: CYTARABINE
     Indication: Acute lymphocytic leukaemia
     Dosage: 40 MG, EVERY 9 WEEKS
     Route: 037
     Dates: start: 20210901, end: 20220211
  8. HYDROCORTISONE [Suspect]
     Active Substance: HYDROCORTISONE
     Indication: Acute lymphocytic leukaemia
     Dosage: 15 MG, EVERY 9 WEEKS
     Route: 037
     Dates: start: 20211203, end: 20220211
  9. VINCRISTINE [Suspect]
     Active Substance: VINCRISTINE
     Indication: Acute lymphocytic leukaemia
     Dosage: 2 MG/M2,  D1 OF EACH 3 WEEK CYCLE
     Route: 042
     Dates: start: 20210904, end: 20220325

REACTIONS (1)
  - Disease progression [Not Recovered/Not Resolved]

NARRATIVE: CASE EVENT DATE: 20220430
